FAERS Safety Report 7831550-3 (Version None)
Quarter: 2011Q4

REPORT INFORMATION
  Report Type: 
  Country: None (occurrence: None)
  Receive Date: 20111021
  Receipt Date: 20111019
  Transmission Date: 20120403
  Serious: Yes (Hospitalization)
  Sender: FDA-Public Use
  Company Number: CHPA2011US14426

PATIENT
  Age: 86 Year
  Sex: Female

DRUGS (2)
  1. CORTISONE ACETATE [Concomitant]
     Indication: ARTHRITIS
  2. VOLTAREN [Suspect]
     Indication: ARTHRITIS
     Dosage: ^AN INCH^, PRN
     Route: 061
     Dates: start: 20110101

REACTIONS (3)
  - UNDERDOSE [None]
  - ATRIAL FIBRILLATION [None]
  - WRONG TECHNIQUE IN DRUG USAGE PROCESS [None]
